FAERS Safety Report 5652286-3 (Version None)
Quarter: 2008Q1

REPORT INFORMATION
  Report Type: 
  Country: None (occurrence: None)
  Receive Date: 20080305
  Receipt Date: 20080220
  Transmission Date: 20080703
  Serious: No
  Sender: FDA-Public Use
  Company Number: PT-BOEHRINGER INGELHEIM GMBH, GERMANY-2008-DE-01190BY

PATIENT
  Sex: Female

DRUGS (4)
  1. PRITOR PLUS [Suspect]
     Indication: HYPERTENSION
     Route: 048
  2. ASPIRIN [Suspect]
     Indication: CEREBROVASCULAR ACCIDENT
     Route: 048
  3. VALSARTAN [Concomitant]
  4. METFORMIN HCL [Concomitant]
     Indication: TYPE 2 DIABETES MELLITUS
     Route: 065

REACTIONS (3)
  - HEADACHE [None]
  - PAIN IN EXTREMITY [None]
  - VISUAL DISTURBANCE [None]
